FAERS Safety Report 21433296 (Version 1)
Quarter: 2022Q4

REPORT INFORMATION
  Report Type: Spontaneous
  Country: FR (occurrence: FR)
  Receive Date: 20221010
  Receipt Date: 20221010
  Transmission Date: 20230113
  Serious: Yes (Life-Threatening, Hospitalization, Other)
  Sender: FDA-Public Use
  Company Number: None

PATIENT
  Age: 63 Year
  Sex: Male
  Weight: 75 kg

DRUGS (7)
  1. KINERET [Suspect]
     Active Substance: ANAKINRA
     Indication: Gene mutation
     Dates: start: 20210521, end: 20210524
  2. EDETATE SODIUM [Concomitant]
     Active Substance: EDETATE SODIUM
  3. POLYSORBATE 80 [Concomitant]
     Active Substance: POLYSORBATE 80
  4. WATER [Concomitant]
     Active Substance: WATER
  5. SODIUM CHLORIDE [Concomitant]
     Active Substance: SODIUM CHLORIDE
  6. SODIUM CITRATE [Concomitant]
     Active Substance: SODIUM CITRATE
  7. SODIUM HYDROXIDE [Concomitant]
     Active Substance: SODIUM HYDROXIDE

REACTIONS (1)
  - Agranulocytosis [Recovered/Resolved]

NARRATIVE: CASE EVENT DATE: 20210526
